FAERS Safety Report 10239264 (Version 1)
Quarter: 2014Q2

REPORT INFORMATION
  Report Type: Spontaneous
  Country: US (occurrence: US)
  Receive Date: 20140616
  Receipt Date: 20140616
  Transmission Date: 20141212
  Serious: No
  Sender: FDA-Public Use
  Company Number: US-GILEAD-2014-0104969

PATIENT
  Sex: Female

DRUGS (2)
  1. SOVALDI [Suspect]
     Indication: HEPATITIS C
     Dosage: UNK
     Route: 065
     Dates: start: 201401, end: 20140328
  2. RIBAVIRIN [Concomitant]
     Indication: HEPATITIS C
     Dosage: UNK
     Dates: start: 201401, end: 20140328

REACTIONS (7)
  - Bronchitis [Unknown]
  - Hypertension [Unknown]
  - Unevaluable event [Unknown]
  - Dry mouth [Unknown]
  - Increased tendency to bruise [Unknown]
  - Back pain [Unknown]
  - Cough [Unknown]
